FAERS Safety Report 7893429-0 (Version None)
Quarter: 2011Q4

REPORT INFORMATION
  Report Type: 
  Country: None (occurrence: None)
  Receive Date: 20111104
  Receipt Date: 20111028
  Transmission Date: 20120403
  Serious: Yes (Hospitalization)
  Sender: FDA-Public Use
  Company Number: US-US-EMD SERONO, INC.-7053870

PATIENT
  Sex: Female

DRUGS (2)
  1. REBIF [Suspect]
     Indication: MULTIPLE SCLEROSIS
     Route: 058
     Dates: start: 20101018
  2. IBUPROFEN [Concomitant]
     Indication: PREMEDICATION

REACTIONS (6)
  - PAIN [None]
  - INJECTION SITE HAEMATOMA [None]
  - RASH GENERALISED [None]
  - INJECTION SITE PAIN [None]
  - CENTRAL PAIN SYNDROME [None]
  - DEPRESSED MOOD [None]
